FAERS Safety Report 15664003 (Version 1)
Quarter: 2018Q4

REPORT INFORMATION
  Report Type: Report from Study
  Country: CA (occurrence: CA)
  Receive Date: 20181128
  Receipt Date: 20181128
  Transmission Date: 20190205
  Serious: Yes (Hospitalization)
  Sender: FDA-Public Use
  Company Number: CA-TAKEDA-2018TUS010202

PATIENT
  Age: 66 Year
  Sex: Female

DRUGS (18)
  1. TEVA RISEDRONATE [Concomitant]
     Active Substance: RISEDRONATE SODIUM
     Dosage: 35 MG, UNK
     Dates: start: 20170601
  2. TEVA VALSARTAN [Concomitant]
     Dosage: 160 MG, UNK
     Dates: start: 20170601
  3. JAMP AMLODIPINE [Concomitant]
     Dosage: 10 MG, UNK
     Dates: start: 20170601
  4. JAMP CALCIUM [Concomitant]
     Dosage: UNK
     Dates: start: 20170601
  5. HUMIRA [Concomitant]
     Active Substance: ADALIMUMAB
     Dosage: UNK
     Dates: start: 20170601
  6. SYNTHROID [Concomitant]
     Active Substance: LEVOTHYROXINE SODIUM
     Dosage: 0.137 MG, UNK
     Dates: start: 20170601
  7. ACT RANITIDINE [Concomitant]
     Active Substance: RANITIDINE
     Dosage: 150 MG, UNK
     Dates: start: 20170510
  8. VEDOLIZUMAB [Suspect]
     Active Substance: VEDOLIZUMAB
     Dosage: 300 MG, Q4WEEKS
     Route: 042
     Dates: start: 20180830
  9. VEDOLIZUMAB [Suspect]
     Active Substance: VEDOLIZUMAB
     Dosage: 300 MG, Q4WEEKS
     Route: 042
  10. LANSOPRAZOLE TEVA [Concomitant]
     Active Substance: LANSOPRAZOLE
     Dosage: 30 MG, UNK
     Dates: start: 20170601
  11. METHOTREXATE. [Concomitant]
     Active Substance: METHOTREXATE
     Dosage: UNK
  12. VEDOLIZUMAB [Suspect]
     Active Substance: VEDOLIZUMAB
     Indication: COLITIS ULCERATIVE
     Dosage: 300 MG, UNK
     Route: 042
     Dates: start: 20170713
  13. METFORMIN [Concomitant]
     Active Substance: METFORMIN HYDROCHLORIDE
     Dosage: 850 MG, UNK
     Dates: start: 20170601
  14. JAMP VITAMIN D [Concomitant]
     Dosage: UNK
     Dates: start: 20170601
  15. SIMVASTATIN TEVA [Concomitant]
     Active Substance: SIMVASTATIN
     Dosage: 40 MG, UNK
     Dates: start: 20170601
  16. PMS DIPHENHYDRAMINE [Concomitant]
     Dosage: 25 MG, UNK
     Dates: start: 20170513
  17. JAMP CALCIUM [Concomitant]
     Dosage: 500 MG, UNK
  18. NOVO-PREDNISONE [Concomitant]
     Active Substance: PREDNISONE
     Dosage: 5 MG, UNK
     Dates: start: 20170419

REACTIONS (4)
  - Coronary artery occlusion [Not Recovered/Not Resolved]
  - Blood pressure fluctuation [Unknown]
  - Blood pressure increased [Unknown]
  - Off label use [Unknown]

NARRATIVE: CASE EVENT DATE: 2018
